FAERS Safety Report 4712668-0 (Version None)
Quarter: 2005Q3

REPORT INFORMATION
  Report Type: 
  Country: None (occurrence: None)
  Receive Date: 20050706
  Receipt Date: 20041217
  Transmission Date: 20060218
  Serious: Yes (Other)
  Sender: FDA-Public Use
  Company Number: US-2004-036859

PATIENT
  Age: 67 Year
  Sex: Female

DRUGS (10)
  1. CAMPATH [Suspect]
     Indication: PROLYMPHOCYTIC LEUKAEMIA
     Dates: start: 20041201
  2. LEUCOVORIN CALCIUM [Concomitant]
  3. ACYCLOVIR [Concomitant]
  4. FLUCONAZOLE [Concomitant]
  5. PANTOPRAZOLE [Concomitant]
  6. ALLOPURINOL [Concomitant]
  7. DAPSONE [Concomitant]
  8. AMITRIPTYLINE HCL [Concomitant]
  9. LEVOTHYROXINE [Concomitant]
  10. TYROEMTHAMINE [Concomitant]

REACTIONS (1)
  - BLOOD BILIRUBIN INCREASED [None]
